FAERS Safety Report 4838611-1 (Version None)
Quarter: 2005Q4

REPORT INFORMATION
  Report Type: 
  Country: None (occurrence: None)
  Receive Date: 20051129
  Receipt Date: 20050603
  Transmission Date: 20060501
  Serious: No
  Sender: FDA-Public Use
  Company Number: US-GLAXOSMITHKLINE-A0561094A

PATIENT
  Age: 66 Year
  Sex: Female

DRUGS (2)
  1. COMMIT [Suspect]
  2. NICODERM CQ [Suspect]

REACTIONS (5)
  - ACCIDENTAL EXPOSURE [None]
  - CHOKING SENSATION [None]
  - COUGH [None]
  - DYSPEPSIA [None]
  - NICOTINE DEPENDENCE [None]
